FAERS Safety Report 9988656 (Version 1)
Quarter: 2014Q1

REPORT INFORMATION
  Report Type: Spontaneous
  Country: JP (occurrence: JP)
  Receive Date: 20140310
  Receipt Date: 20140310
  Transmission Date: 20141002
  Serious: Yes (Other)
  Sender: FDA-Public Use
  Company Number: JP-ROCHE-1360675

PATIENT
  Age: 38 Year
  Sex: Male

DRUGS (2)
  1. CELLCEPT [Suspect]
     Indication: PRODUCT USED FOR UNKNOWN INDICATION
     Dosage: DOSAGE IS UNCERTAIN.
     Route: 048
  2. INSULIN [Concomitant]
     Route: 065

REACTIONS (2)
  - Liver disorder [Unknown]
  - Off label use [Unknown]
